FAERS Safety Report 14910852 (Version 1)
Quarter: 2018Q2

REPORT INFORMATION
  Report Type: Spontaneous
  Country: US (occurrence: US)
  Receive Date: 20180517
  Receipt Date: 20180517
  Transmission Date: 20180711
  Serious: Yes (Other)
  Sender: FDA-Public Use
  Company Number: US-ENDO PHARMACEUTICALS INC-2018-037798

PATIENT
  Age: 33 Year
  Sex: Male

DRUGS (4)
  1. OXYMETHOLONE [Suspect]
     Active Substance: OXYMETHOLONE
     Indication: PERFORMANCE ENHANCING PRODUCT USE
     Dosage: UNK UNKNOWN, UNKNOWN
     Route: 065
  2. SOMATROPIN. [Suspect]
     Active Substance: SOMATROPIN
     Indication: PERFORMANCE ENHANCING PRODUCT USE
     Dosage: UNK UNKNOWN, UNKNOWN
     Route: 065
  3. STANOZOLOL [Suspect]
     Active Substance: STANOZOLOL
     Indication: PERFORMANCE ENHANCING PRODUCT USE
     Dosage: UNK UNKNOWN, UNKNOWN
     Route: 065
  4. TESTIM [Suspect]
     Active Substance: TESTOSTERONE
     Indication: PERFORMANCE ENHANCING PRODUCT USE
     Dosage: UNK UNKNOWN, UNKNOWN
     Route: 065

REACTIONS (2)
  - Drug abuse [Unknown]
  - Aortic aneurysm [Unknown]
